FAERS Safety Report 6406737-7 (Version None)
Quarter: 2009Q4

REPORT INFORMATION
  Report Type: 
  Country: None (occurrence: None)
  Receive Date: 20091020
  Receipt Date: 20091008
  Transmission Date: 20100525
  Serious: Yes (Hospitalization, Other)
  Sender: FDA-Public Use
  Company Number: US-JNJFOC-20090601905

PATIENT
  Sex: Female

DRUGS (8)
  1. REMICADE [Suspect]
     Route: 042
     Dates: start: 20081201, end: 20090601
  2. REMICADE [Suspect]
     Route: 042
     Dates: start: 20081201, end: 20090601
  3. REMICADE [Suspect]
     Indication: RHEUMATOID ARTHRITIS
     Dosage: 160/4.5
     Route: 042
     Dates: start: 20081201, end: 20090601
  4. SYMBICORT [Concomitant]
     Indication: ASTHMA
  5. NASONEX [Concomitant]
     Indication: MULTIPLE ALLERGIES
  6. SINGULAIR [Concomitant]
     Indication: MULTIPLE ALLERGIES
  7. PREDNISONE [Concomitant]
  8. METHOTREXATE [Concomitant]

REACTIONS (2)
  - CRYPTOCOCCOSIS [None]
  - IMPAIRED GASTRIC EMPTYING [None]
